FAERS Safety Report 6050162-8 (Version None)
Quarter: 2009Q1

REPORT INFORMATION
  Report Type: 
  Country: None (occurrence: None)
  Receive Date: 20090121
  Receipt Date: 20090121
  Transmission Date: 20090719
  Serious: Yes (Life-Threatening, Hospitalization)
  Sender: FDA-Public Use
  Company Number: None

PATIENT
  Sex: Female
  Weight: 52.1637 kg

DRUGS (1)
  1. DURAGESIC-50 [Suspect]
     Indication: NECK INJURY
     Dosage: 50 MCG EVERY 72 HOURS TRANSDERMAL
     Route: 062
     Dates: start: 20061101, end: 20061206

REACTIONS (8)
  - AGITATION [None]
  - AMNESIA [None]
  - IMMOBILE [None]
  - MALAISE [None]
  - MENTAL STATUS CHANGES [None]
  - OVERDOSE [None]
  - PNEUMONIA [None]
  - RESPIRATORY DISORDER [None]
